FAERS Safety Report 11153133 (Version 1)
Quarter: 2015Q2

REPORT INFORMATION
  Report Type: Spontaneous
  Country: DE (occurrence: DE)
  Receive Date: 20150601
  Receipt Date: 20150601
  Transmission Date: 20150821
  Serious: Yes (Other)
  Sender: FDA-Public Use
  Company Number: GXKR2015DE002600

PATIENT

DRUGS (3)
  1. PREDNISOLONE. [Suspect]
     Active Substance: PREDNISOLONE
     Indication: CROHN^S DISEASE
     Dosage: MATERNAL DOSE [6. - 40.1 GESTATIONAL WEEK]: 10 [MG/D]
     Route: 064
  2. HUMIRA [Concomitant]
     Active Substance: ADALIMUMAB
     Indication: CROHN^S DISEASE
     Dosage: MATERNAL DOSE (0. - 4.6. GESTATIONAL WEEK): 40 [MG/2WKS ]/ TWO TIMES DURING PREGNANCY
     Route: 064
     Dates: start: 20140312, end: 20140415
  3. PANTOPRAZOLE SODIUM. [Concomitant]
     Active Substance: PANTOPRAZOLE SODIUM
     Indication: CROHN^S DISEASE
     Dosage: MATERNAL DOSE (0. - 14. GESTATIONAL WEEK]: 40 [MG/D ]/ SINCE 2006
     Route: 064

REACTIONS (1)
  - Small for dates baby [Recovering/Resolving]

NARRATIVE: CASE EVENT DATE: 20141218
